FAERS Safety Report 9552277 (Version 1)
Quarter: 2013Q2

REPORT INFORMATION
  Report Type: Spontaneous
  Country: US (occurrence: None)
  Receive Date: 20130524
  Receipt Date: 20130524
  Transmission Date: 20140414
  Serious: No
  Sender: FDA-Public Use
  Company Number: PHEH2013US004731

PATIENT
  Sex: Female
  Weight: 68 kg

DRUGS (5)
  1. GILENYA [Suspect]
     Indication: MULTIPLE SCLEROSIS
     Route: 048
     Dates: start: 20130221
  2. TOPAMAX (TOPIRAMATE) [Concomitant]
  3. PROVIGIL (MODAFINIL) [Concomitant]
  4. CELEXA (CITALOPRAM HYDROBROMIDE) [Concomitant]
  5. HYDROCODONE [Concomitant]

REACTIONS (2)
  - Aphagia [None]
  - Abdominal discomfort [None]
